FAERS Safety Report 8437030-9 (Version None)
Quarter: 2012Q2

REPORT INFORMATION
  Report Type: 
  Country: None (occurrence: None)
  Receive Date: 20120614
  Receipt Date: 20120612
  Transmission Date: 20120825
  Serious: Yes (Hospitalization)
  Sender: FDA-Public Use
  Company Number: US-ELI_LILLY_AND_COMPANY-US201206001439

PATIENT
  Sex: Male
  Weight: 97.506 kg

DRUGS (1)
  1. EFFIENT [Suspect]
     Dosage: UNK
     Dates: start: 20110628

REACTIONS (2)
  - CARDIAC FAILURE ACUTE [None]
  - VENTRICULAR EXTRASYSTOLES [None]
